FAERS Safety Report 9588774 (Version 1)
Quarter: 2013Q4

REPORT INFORMATION
  Report Type: Spontaneous
  Country: US (occurrence: US)
  Receive Date: 20131003
  Receipt Date: 20131003
  Transmission Date: 20140711
  Serious: No
  Sender: FDA-Public Use
  Company Number: US-AMGEN-USASP2012066287

PATIENT
  Sex: Male
  Weight: 97.05 kg

DRUGS (3)
  1. ENBREL [Suspect]
     Indication: PRODUCT USED FOR UNKNOWN INDICATION
     Dosage: 50 MG, QWK
     Route: 058
  2. IBUPROFEN [Concomitant]
     Dosage: 200 MG
  3. AMBIEN [Concomitant]
     Dosage: 5 MG

REACTIONS (2)
  - Injection site discolouration [Recovered/Resolved]
  - Injection site rash [Recovered/Resolved]
